FAERS Safety Report 6202722-9 (Version None)
Quarter: 2009Q2

REPORT INFORMATION
  Report Type: 
  Country: None (occurrence: None)
  Receive Date: 20090526
  Receipt Date: 20090515
  Transmission Date: 20091009
  Serious: Yes (Other)
  Sender: FDA-Public Use
  Company Number: PHHY2009MX18329

PATIENT
  Sex: Female

DRUGS (3)
  1. DIOVAN HCT [Suspect]
     Indication: HYPERTENSION
     Dosage: 1 TABLET (80/12.5 MG) PER DAY
     Route: 048
     Dates: start: 20060612, end: 20090503
  2. DIGOXIN [Concomitant]
     Indication: CARDIAC DISORDER
     Dosage: 1 TABLET PER DAY
     Dates: start: 19890511
  3. FUROSEMIDE [Concomitant]
     Indication: SWELLING
     Dosage: 1 TABLET PER DAY
     Dates: start: 19890511

REACTIONS (6)
  - ARTERIAL OCCLUSIVE DISEASE [None]
  - BRONCHITIS [None]
  - CARDIOMYOPATHY [None]
  - CHEST PAIN [None]
  - HYPOAESTHESIA [None]
  - TREATMENT NONCOMPLIANCE [None]
